FAERS Safety Report 6497564-3 (Version None)
Quarter: 2009Q4

REPORT INFORMATION
  Report Type: 
  Country: None (occurrence: None)
  Receive Date: 20091215
  Receipt Date: 20091203
  Transmission Date: 20100525
  Serious: Yes (Death, Hospitalization, Other)
  Sender: FDA-Public Use
  Company Number: BR-ELI_LILLY_AND_COMPANY-BR200911003741

PATIENT
  Sex: Female
  Weight: 60 kg

DRUGS (2)
  1. FORTEO [Suspect]
     Indication: OSTEOPOROSIS
     Dosage: 20 UG, DAILY (1/D)
     Route: 058
     Dates: start: 20081001, end: 20090101
  2. LOSARTAN [Concomitant]
     Indication: HYPERTENSION
     Dosage: 25 MG, UNKNOWN
     Route: 065

REACTIONS (7)
  - CARDIAC ARREST [None]
  - CARDIOMEGALY [None]
  - CHRONIC OBSTRUCTIVE PULMONARY DISEASE [None]
  - CYANOSIS [None]
  - LUNG DISORDER [None]
  - PULMONARY FIBROSIS [None]
  - SEPSIS [None]
